FAERS Safety Report 24794899 (Version 2)
Quarter: 2025Q1

REPORT INFORMATION
  Report Type: Spontaneous
  Country: US (occurrence: US)
  Receive Date: 20241231
  Receipt Date: 20250203
  Transmission Date: 20250408
  Serious: No
  Sender: PFIZER
  Company Number: US-PFIZER INC-202400333237

PATIENT
  Age: 33 Year
  Sex: Female

DRUGS (1)
  1. SOMAVERT [Suspect]
     Active Substance: PEGVISOMANT
     Dates: start: 20241220

REACTIONS (2)
  - Stress [Unknown]
  - Injection site rash [Unknown]

NARRATIVE: CASE EVENT DATE: 20241220
